FAERS Safety Report 9170807 (Version 3)
Quarter: 2013Q4

REPORT INFORMATION
  Report Type: Spontaneous
  Country: GB (occurrence: None)
  Receive Date: 20130311
  Receipt Date: 20131001
  Transmission Date: 20140711
  Serious: Yes (Other)
  Sender: FDA-Public Use
  Company Number: GER/UKI/13/0028398

PATIENT
  Age: 78 Year
  Sex: Female

DRUGS (7)
  1. CLOPIDOGREL [Suspect]
     Indication: CEREBROVASCULAR ACCIDENT
     Route: 048
     Dates: start: 201201
  2. ZOMETA (ZOLEDRONIC ACID) [Suspect]
     Indication: PRODUCT USED FOR UNKNOWN INDICATION
     Dosage: 1 DOSAGE FORMS, 2 IN 1 Y, INTRAVENOUS (NOT OTHERWISE SPECIFIED)
     Route: 042
     Dates: start: 20121207
  3. ADCAL-D3 (LEKOVIT CA) [Concomitant]
  4. ALENDRONIC ACID [Concomitant]
  5. ANASTROZOLE [Concomitant]
  6. FELODIPINE [Concomitant]
  7. SIMVASTATIN [Concomitant]

REACTIONS (3)
  - No therapeutic response [None]
  - Drug interaction [None]
  - Increased tendency to bruise [None]
